FAERS Safety Report 14535366 (Version 2)
Quarter: 2018Q3

REPORT INFORMATION
  Report Type: Report from Study
  Country: None (occurrence: US)
  Receive Date: 20180215
  Receipt Date: 20180721
  Transmission Date: 20181010
  Serious: Yes (Other)
  Sender: FDA-Public Use
  Company Number: US-ABBVIE-18K-163-2256903-00

PATIENT
  Age: 46 Year
  Sex: Female
  Weight: 47.67 kg

DRUGS (10)
  1. HUMIRA [Suspect]
     Active Substance: ADALIMUMAB
     Indication: CROHN^S DISEASE
     Dosage: LOADING DOSE
     Route: 058
     Dates: start: 2007, end: 2007
  2. HUMIRA [Suspect]
     Active Substance: ADALIMUMAB
     Route: 058
     Dates: start: 2016, end: 2016
  3. HUMIRA [Suspect]
     Active Substance: ADALIMUMAB
     Route: 058
     Dates: start: 2016, end: 201701
  4. MERCAPTOPURINE. [Concomitant]
     Active Substance: MERCAPTOPURINE
     Indication: CROHN^S DISEASE
  5. ASPIRIN. [Concomitant]
     Active Substance: ASPIRIN
     Indication: PRODUCT USED FOR UNKNOWN INDICATION
  6. HUMIRA [Suspect]
     Active Substance: ADALIMUMAB
     Indication: ANKYLOSING SPONDYLITIS
     Route: 058
     Dates: end: 2016
  7. HUMIRA [Suspect]
     Active Substance: ADALIMUMAB
     Route: 058
     Dates: start: 201701, end: 201711
  8. HUMIRA [Suspect]
     Active Substance: ADALIMUMAB
     Route: 058
     Dates: start: 201711, end: 201804
  9. DOBUTAMINE [Suspect]
     Active Substance: DOBUTAMINE\DOBUTAMINE HYDROCHLORIDE
     Indication: CARDIAC STRESS TEST
     Route: 065
     Dates: start: 2015, end: 2015
  10. HUMIRA [Suspect]
     Active Substance: ADALIMUMAB
     Indication: RHEUMATOID ARTHRITIS
     Dosage: LOADING DOSE
     Route: 058

REACTIONS (25)
  - Insomnia [Not Recovered/Not Resolved]
  - Colon injury [Recovered/Resolved]
  - Gallbladder fistula [Recovered/Resolved]
  - Gastrointestinal inflammation [Unknown]
  - Arteriosclerosis [Not Recovered/Not Resolved]
  - Vaginal fistula [Recovered/Resolved]
  - Gastrointestinal fistula [Recovered/Resolved]
  - Intestinal haemorrhage [Recovered/Resolved]
  - Intestinal ulcer [Recovered/Resolved]
  - Carotid artery occlusion [Not Recovered/Not Resolved]
  - Post procedural complication [Recovered/Resolved]
  - Vascular stent occlusion [Not Recovered/Not Resolved]
  - Nephrolithiasis [Not Recovered/Not Resolved]
  - Cardiac failure congestive [Not Recovered/Not Resolved]
  - Crohn^s disease [Recovered/Resolved]
  - Pericardial effusion [Unknown]
  - Peripheral vascular disorder [Not Recovered/Not Resolved]
  - Intestinal fistula infection [Recovered/Resolved]
  - Heart rate decreased [Recovered/Resolved]
  - Arterial occlusive disease [Not Recovered/Not Resolved]
  - Intestinal perforation [Recovered/Resolved]
  - Abdominal pain [Unknown]
  - Short-bowel syndrome [Not Recovered/Not Resolved]
  - Drug level decreased [Not Recovered/Not Resolved]
  - Depression [Not Recovered/Not Resolved]

NARRATIVE: CASE EVENT DATE: 2014
